FAERS Safety Report 17455029 (Version 1)
Quarter: 2020Q1

REPORT INFORMATION
  Report Type: Spontaneous
  Country: JP (occurrence: JP)
  Receive Date: 20200225
  Receipt Date: 20200225
  Transmission Date: 20200409
  Serious: Yes (Other)
  Sender: FDA-Public Use
  Company Number: JP-ALVOGEN-2020-ALVOGEN-107696

PATIENT
  Age: 52 Year
  Sex: Female

DRUGS (3)
  1. MESNA. [Concomitant]
     Active Substance: MESNA
     Indication: NEOADJUVANT THERAPY
     Dosage: 400 MG/M2 X 3 ON DAYS 1 TO 5
  2. DOXORUBICIN [Suspect]
     Active Substance: DOXORUBICIN
     Indication: NEOADJUVANT THERAPY
     Dosage: THREE CYCLES OF DOXORUBICIN (30 MG/M2 ON DAY 1, DAY 2)
  3. IFOSFAMIDE. [Suspect]
     Active Substance: IFOSFAMIDE
     Indication: NEOADJUVANT THERAPY
     Dosage: THREE CYCLES OF IFOSFAMIDE (2000?MG/M2 ON DAYS 1 TO 5)

REACTIONS (1)
  - Tumour necrosis [Unknown]
